FAERS Safety Report 17458085 (Version 1)
Quarter: 2020Q1

REPORT INFORMATION
  Report Type: Spontaneous
  Country: IT (occurrence: IT)
  Receive Date: 20200225
  Receipt Date: 20200225
  Transmission Date: 20200409
  Serious: Yes (Death, Other)
  Sender: FDA-Public Use
  Company Number: IT-PFIZER INC-2020072114

PATIENT
  Age: 57 Year
  Sex: Male

DRUGS (2)
  1. IFOSFAMIDE. [Suspect]
     Active Substance: IFOSFAMIDE
     Indication: DEDIFFERENTIATED LIPOSARCOMA
     Dosage: UNK, CYCLIC
  2. EPIRUBICIN HCL [Suspect]
     Active Substance: EPIRUBICIN HYDROCHLORIDE
     Indication: DEDIFFERENTIATED LIPOSARCOMA
     Dosage: UNK, CYCLIC

REACTIONS (1)
  - Neurotoxicity [Unknown]
